FAERS Safety Report 19920751 (Version 1)
Quarter: 2021Q4

REPORT INFORMATION
  Report Type: Spontaneous
  Country: US (occurrence: US)
  Receive Date: 20211005
  Receipt Date: 20211005
  Transmission Date: 20220303
  Serious: No
  Sender: FDA-Public Use
  Company Number: US-GLENMARK PHARMACEUTICALS-2020GMK050286

PATIENT

DRUGS (1)
  1. GABAPENTIN [Suspect]
     Active Substance: GABAPENTIN
     Indication: Trigeminal neuralgia
     Dosage: 1200 MILLIGRAM, TID (2 TABLETS OF 600 MG THRICE DAILY)
     Route: 048
     Dates: start: 2014

REACTIONS (2)
  - Skin discolouration [Unknown]
  - Adverse drug reaction [Unknown]
